FAERS Safety Report 13478819 (Version 2)
Quarter: 2017Q2

REPORT INFORMATION
  Report Type: Report from Study
  Country: CA (occurrence: CA)
  Receive Date: 20170425
  Receipt Date: 20170427
  Transmission Date: 20170830
  Serious: Yes (Other)
  Sender: FDA-Public Use
  Company Number: CA-JNJFOC-20170420357

PATIENT
  Age: 17 Year
  Sex: Female

DRUGS (3)
  1. REMICADE [Suspect]
     Active Substance: INFLIXIMAB
     Indication: COLITIS ULCERATIVE
     Route: 042
     Dates: start: 20170418
  2. REMICADE [Suspect]
     Active Substance: INFLIXIMAB
     Indication: COLITIS ULCERATIVE
     Route: 042
  3. REMICADE [Suspect]
     Active Substance: INFLIXIMAB
     Indication: COLITIS ULCERATIVE
     Route: 042
     Dates: start: 20141212

REACTIONS (4)
  - Tooth infection [Unknown]
  - Colitis ulcerative [Unknown]
  - General physical health deterioration [Unknown]
  - Wisdom teeth removal [Unknown]

NARRATIVE: CASE EVENT DATE: 2017
